FAERS Safety Report 6896301-8 (Version None)
Quarter: 2010Q3

REPORT INFORMATION
  Report Type: 
  Country: None (occurrence: None)
  Receive Date: 20100802
  Receipt Date: 20100727
  Transmission Date: 20110219
  Serious: Yes (Other)
  Sender: FDA-Public Use
  Company Number: B0667980A

PATIENT
  Age: 66 Year
  Sex: Male

DRUGS (2)
  1. REQUIP [Suspect]
     Indication: PRODUCT USED FOR UNKNOWN INDICATION
     Route: 065
  2. AZILECT [Suspect]
     Indication: PRODUCT USED FOR UNKNOWN INDICATION
     Route: 065

REACTIONS (7)
  - CONSTIPATION [None]
  - DYSURIA [None]
  - INSOMNIA [None]
  - MUSCLE SPASMS [None]
  - NEOPLASM [None]
  - OEDEMA PERIPHERAL [None]
  - RASH [None]
